FAERS Safety Report 8350840-1 (Version None)
Quarter: 2012Q2

REPORT INFORMATION
  Report Type: 
  Country: None (occurrence: None)
  Receive Date: 20120510
  Receipt Date: 20120427
  Transmission Date: 20120825
  Serious: Yes (Other)
  Sender: FDA-Public Use
  Company Number: DE-BAYER-2012-045441

PATIENT
  Sex: Female

DRUGS (1)
  1. MIRENA [Suspect]
     Indication: CONTRACEPTION

REACTIONS (24)
  - DEPRESSION [None]
  - HYPERTRICHOSIS [None]
  - FOOD CRAVING [None]
  - PROCEDURAL PAIN [None]
  - SYSTEMIC LUPUS ERYTHEMATOSUS [None]
  - VAGINAL HAEMORRHAGE [None]
  - LOSS OF LIBIDO [None]
  - MEDICAL DEVICE COMPLICATION [None]
  - ABDOMINAL PAIN [None]
  - WEIGHT INCREASED [None]
  - VAGINAL DISCHARGE [None]
  - ABDOMINAL DISTENSION [None]
  - DEVICE DISLOCATION [None]
  - ANXIETY [None]
  - MOOD SWINGS [None]
  - INSOMNIA [None]
  - HEADACHE [None]
  - DIZZINESS [None]
  - FIBROMYALGIA [None]
  - FATIGUE [None]
  - JOINT SWELLING [None]
  - POST PROCEDURAL HAEMORRHAGE [None]
  - WITHDRAWAL SYNDROME [None]
  - ALOPECIA [None]
